FAERS Safety Report 5003643-X (Version None)
Quarter: 2006Q2

REPORT INFORMATION
  Report Type: 
  Country: None (occurrence: None)
  Receive Date: 20060516
  Receipt Date: 20050112
  Transmission Date: 20061013
  Serious: Yes (Hospitalization, Other)
  Sender: FDA-Public Use
  Company Number: US-MERCK-0501USA01919

PATIENT
  Sex: Female
  Weight: 68 kg

DRUGS (4)
  1. VIOXX [Suspect]
     Indication: PAIN IN EXTREMITY
     Route: 048
     Dates: start: 19990101, end: 20040101
  2. VIOXX [Suspect]
     Route: 048
     Dates: start: 19990101, end: 20040101
  3. VIOXX [Suspect]
     Indication: SHOULDER PAIN
     Route: 048
     Dates: start: 19990101, end: 20040101
  4. VIOXX [Suspect]
     Route: 048
     Dates: start: 19990101, end: 20040101

REACTIONS (27)
  - ANAEMIA [None]
  - ANGIONEUROTIC OEDEMA [None]
  - AORTIC VALVE INCOMPETENCE [None]
  - AORTIC VALVE SCLEROSIS [None]
  - ARTHROPATHY [None]
  - CARDIAC MURMUR [None]
  - CROUP INFECTIOUS [None]
  - DIVERTICULUM INTESTINAL [None]
  - DIZZINESS [None]
  - DYSPNOEA [None]
  - HAEMORRHOIDS [None]
  - HEADACHE [None]
  - HYPERHIDROSIS [None]
  - HYPOKALAEMIA [None]
  - HYPOKINESIA [None]
  - JOINT SWELLING [None]
  - MASS [None]
  - MITRAL VALVE INCOMPETENCE [None]
  - MITRAL VALVE SCLEROSIS [None]
  - MYOCARDIAL INFARCTION [None]
  - NON-CARDIAC CHEST PAIN [None]
  - OEDEMA PERIPHERAL [None]
  - ORTHOPNOEA [None]
  - PRESCRIBED OVERDOSE [None]
  - PULMONARY ARTERIAL PRESSURE INCREASED [None]
  - SYNCOPE [None]
  - VENTRICULAR HYPERTROPHY [None]
